FAERS Safety Report 16158872 (Version 1)
Quarter: 2019Q2

REPORT INFORMATION
  Report Type: Spontaneous
  Country: US (occurrence: US)
  Receive Date: 20190403
  Receipt Date: 20190403
  Transmission Date: 20190711
  Serious: Yes (Other)
  Sender: FDA-Public Use
  Company Number: None

PATIENT
  Age: 44 Year
  Sex: Male
  Weight: 96.75 kg

DRUGS (4)
  1. FISH OIL [Concomitant]
     Active Substance: FISH OIL
  2. COQ10 [Concomitant]
     Active Substance: UBIDECARENONE
  3. ATORVASTATIN 20MG TABLETS [Suspect]
     Active Substance: ATORVASTATIN
     Indication: BLOOD CHOLESTEROL INCREASED
     Dosage: 1 TABLET, ORAL, EVERY EVENING
     Route: 048
     Dates: start: 20190321, end: 20190328
  4. NORCO [Concomitant]
     Active Substance: ACETAMINOPHEN\HYDROCODONE BITARTRATE

REACTIONS (5)
  - Tendon pain [None]
  - Neuralgia [None]
  - Blepharospasm [None]
  - Burning sensation [None]
  - Myalgia [None]

NARRATIVE: CASE EVENT DATE: 20190328
